FAERS Safety Report 10643281 (Version 1)
Quarter: 2014Q4

REPORT INFORMATION
  Report Type: Report from Study
  Country: US (occurrence: None)
  Receive Date: 20141128
  Receipt Date: 20141128
  Transmission Date: 20150529
  Serious: Yes (Hospitalization)
  Sender: FDA-Public Use
  Company Number: 2395713

PATIENT
  Age: 61 Year
  Sex: Female
  Weight: 65.3 kg

DRUGS (3)
  1. PENTOSTATINE [Suspect]
     Active Substance: PENTOSTATIN
     Indication: CHRONIC LYMPHOCYTIC LEUKAEMIA
     Dosage: 6.9 MG MILLIGRAM(S), CYCLICAL, UNKNOWN
     Dates: start: 20120305
  2. (RITUXIMAB) [Suspect]
     Active Substance: RITUXIMAB
     Indication: CHRONIC LYMPHOCYTIC LEUKAEMIA
     Dosage: 47 MG MILLIGRAM(S), CYCLICAL, UNKNOWN
     Dates: start: 20120305
  3. (CYCLOPHOSPHAMIDE) [Suspect]
     Active Substance: CYCLOPHOSPHAMIDE
     Indication: CHRONIC LYMPHOCYTIC LEUKAEMIA
     Dosage: 1038 MG MILLIGRAM(S), CYCLICAL, UNKNOWN
     Dates: start: 20120305

REACTIONS (2)
  - White blood cell count decreased [None]
  - Neutrophil count decreased [None]

NARRATIVE: CASE EVENT DATE: 20120305
